FAERS Safety Report 7795795-3 (Version None)
Quarter: 2011Q3

REPORT INFORMATION
  Report Type: 
  Country: None (occurrence: None)
  Receive Date: 20110929
  Receipt Date: 20110919
  Transmission Date: 20111222
  Serious: Yes (Hospitalization, Other)
  Sender: FDA-Public Use
  Company Number: 2011SP039650

PATIENT
  Sex: Male

DRUGS (3)
  1. PEG-INTERFERON [Suspect]
     Indication: HEPATITIS C
     Dosage: 180 MG;QW
     Dates: start: 20110801, end: 20110801
  2. RIBAVIRIN [Suspect]
     Indication: HEPATITIS C
     Dosage: 170 MG;QD
     Dates: start: 20110801, end: 20110801
  3. VICTRELIS [Suspect]
     Indication: HEPATITIS C
     Dosage: 800 MG;TID;PO
     Route: 048
     Dates: start: 20110801, end: 20110801

REACTIONS (4)
  - NAUSEA [None]
  - RENAL FAILURE [None]
  - ASTHENIA [None]
  - HAEMOLYSIS [None]
